FAERS Safety Report 4638846-7 (Version None)
Quarter: 2005Q2

REPORT INFORMATION
  Report Type: 
  Country: None (occurrence: None)
  Receive Date: 20050415
  Receipt Date: 20050415
  Transmission Date: 20051028
  Serious: Yes (Other)
  Sender: FDA-Public Use
  Company Number: None

PATIENT
  Age: 6 Year
  Sex: Male
  Weight: 19.0511 kg

DRUGS (1)
  1. AMOXICILLIN [Suspect]
     Indication: PHARYNGITIS STREPTOCOCCAL
     Dosage: 1 TSP TWICE DAY FOR 1 DAYS

REACTIONS (2)
  - DRUG DISPENSING ERROR [None]
  - MEDICATION ERROR [None]
